FAERS Safety Report 16316688 (Version 15)
Quarter: 2022Q2

REPORT INFORMATION
  Report Type: Report from Study
  Country: ES (occurrence: ES)
  Receive Date: 20190515
  Receipt Date: 20220513
  Transmission Date: 20220721
  Serious: Yes (Other)
  Sender: FDA-Public Use
  Company Number: PHHO2016ES006978

PATIENT
  Age: 61 Year
  Sex: Male
  Weight: 74 kg

DRUGS (19)
  1. SIPONIMOD [Suspect]
     Active Substance: SIPONIMOD
     Indication: Secondary progressive multiple sclerosis
     Dosage: UNK
     Route: 048
     Dates: start: 20160330, end: 20190618
  2. SIPONIMOD [Suspect]
     Active Substance: SIPONIMOD
     Dosage: UNK
     Route: 048
     Dates: start: 20190723, end: 20191001
  3. SIPONIMOD [Suspect]
     Active Substance: SIPONIMOD
     Dosage: UNK
     Route: 048
     Dates: start: 20200120, end: 20210212
  4. PLACEBO [Suspect]
     Active Substance: UNSPECIFIED INGREDIENT
     Indication: Secondary progressive multiple sclerosis
     Dosage: UNK
     Route: 048
     Dates: start: 20141023, end: 20160302
  5. LISINOPRIL [Concomitant]
     Active Substance: LISINOPRIL
     Indication: Hypertension
     Dosage: 10 MG, Q24H
     Route: 048
     Dates: start: 201207
  6. DUTASTERIDE [Concomitant]
     Active Substance: DUTASTERIDE
     Indication: Benign prostatic hyperplasia
     Dosage: 0.5 MG, Q24H
     Route: 048
     Dates: start: 201207
  7. TAMSULOSIN HYDROCHLORIDE [Concomitant]
     Active Substance: TAMSULOSIN HYDROCHLORIDE
     Indication: Benign prostatic hyperplasia
     Dosage: 0.4 MG, Q24H
     Route: 048
     Dates: start: 201207
  8. MOMETASONE [Concomitant]
     Active Substance: MOMETASONE
     Indication: Seasonal allergy
     Dosage: 4 DF, Q12H
     Route: 055
     Dates: start: 20150424
  9. CETIRIZINE [Concomitant]
     Active Substance: CETIRIZINE HYDROCHLORIDE
     Indication: Seasonal allergy
     Dosage: 10 MG, PRN
     Route: 048
     Dates: start: 201406
  10. ACETAMINOPHEN [Concomitant]
     Active Substance: ACETAMINOPHEN
     Indication: Acute sinusitis
     Dosage: UNK MG, PRN
     Route: 048
     Dates: start: 20161214
  11. ACETAMINOPHEN [Concomitant]
     Active Substance: ACETAMINOPHEN
     Indication: Pain
     Dosage: 1 G
     Route: 048
  12. MIRABEGRON [Concomitant]
     Active Substance: MIRABEGRON
     Indication: Benign prostatic hyperplasia
     Dosage: 50 MG, QD
     Route: 048
     Dates: start: 20200113
  13. INFLUENZA VIRUS VACCINE [Concomitant]
     Active Substance: INFLUENZA VIRUS VACCINE
     Indication: Prophylaxis
     Dosage: 1 UNK, ONCE/SINGLE
     Route: 030
     Dates: start: 20181204, end: 20181204
  14. INFLUENZA VIRUS VACCINE [Concomitant]
     Active Substance: INFLUENZA VIRUS VACCINE
     Dosage: 1, ONCE/SINGLE
     Route: 058
     Dates: start: 20171205, end: 20171205
  15. AMOXICILLIN [Concomitant]
     Active Substance: AMOXICILLIN
     Indication: Infection prophylaxis
     Dosage: UNK
     Route: 065
     Dates: start: 20180301, end: 20180308
  16. UNSPECIFIED INGREDIENT [Concomitant]
     Active Substance: UNSPECIFIED INGREDIENT
     Indication: Antiviral prophylaxis
     Dosage: 1 OTHER, QD
     Route: 030
     Dates: start: 20161110, end: 20161110
  17. STREPTOKINASE-STREPTODORNASE [Concomitant]
     Active Substance: STREPTOKINASE-STREPTODORNASE
     Indication: Dysphonia
     Dosage: 2, OTHER, Q8H
     Route: 048
     Dates: start: 20160412, end: 20160417
  18. LEXXEMA [Concomitant]
     Indication: Chillblains
     Dosage: UNK, Q24H
     Route: 061
     Dates: start: 20160310, end: 20160324
  19. AMOXICILLIN [Concomitant]
     Active Substance: AMOXICILLIN
     Indication: Herpangina
     Dosage: 750 MG, Q6H
     Route: 048
     Dates: start: 20170901, end: 20170908

REACTIONS (8)
  - Basal cell carcinoma [Recovered/Resolved]
  - Basal cell carcinoma [Recovered/Resolved]
  - Basal cell carcinoma [Recovered/Resolved]
  - Basal cell carcinoma [Recovered/Resolved]
  - Basal cell carcinoma [Recovered/Resolved]
  - Squamous cell carcinoma [Recovered/Resolved]
  - Basal cell carcinoma [Recovered/Resolved]
  - Basal cell carcinoma [Recovered/Resolved]

NARRATIVE: CASE EVENT DATE: 20170323
